FAERS Safety Report 9895543 (Version 2)
Quarter: 2014Q1

REPORT INFORMATION
  Report Type: Spontaneous
  Country: US (occurrence: US)
  Receive Date: 20140213
  Receipt Date: 20140213
  Transmission Date: 20141002
  Serious: No
  Sender: FDA-Public Use
  Company Number: US-BRISTOL-MYERS SQUIBB COMPANY-17286428

PATIENT
  Age: 63 Year
  Sex: Female
  Weight: 96 kg

DRUGS (13)
  1. ABATACEPT SUBQ INJECTION 125MG/ML [Suspect]
     Dosage: 125 MG/1 ML (4 PACK)
     Route: 058
  2. PLAQUENIL [Concomitant]
     Dosage: TABS
  3. METHOTREXATE TABS [Concomitant]
  4. METHADONE [Concomitant]
  5. NEURONTIN [Concomitant]
     Dosage: CAPS
  6. SYNTHROID [Concomitant]
  7. RECLAST [Concomitant]
     Dosage: 1 DF = 5/100 ML
  8. LEFLUNOMIDE [Concomitant]
     Dosage: TAB
  9. SPIRONOLACTONE [Concomitant]
     Dosage: TABS
  10. PREVACID [Concomitant]
     Dosage: DR
  11. OXYCODONE [Concomitant]
     Dosage: TAB
  12. VITAMIN D [Concomitant]
     Dosage: CAPS 1 DF= 1000UNITS NOS
  13. FOLIC ACID [Concomitant]
     Dosage: TABS

REACTIONS (3)
  - Influenza [Unknown]
  - Skin infection [Unknown]
  - Pain [Unknown]
